FAERS Safety Report 7223326-5 (Version None)
Quarter: 2011Q1

REPORT INFORMATION
  Report Type: 
  Country: None (occurrence: None)
  Receive Date: 20110112
  Receipt Date: 20100430
  Transmission Date: 20110831
  Serious: No
  Sender: FDA-Public Use
  Company Number: US-ALLERGAN-1005628US

PATIENT
  Age: 83 Year
  Sex: Female

DRUGS (2)
  1. RESTASIS [Suspect]
     Indication: DRY EYE
     Dosage: 1 GTT, Q12H
     Route: 047
     Dates: start: 20100422
  2. REFRESH LIQUIGEL OPHTHALMIC [Concomitant]
     Indication: DRY EYE

REACTIONS (3)
  - EYE PAIN [None]
  - EYE IRRITATION [None]
  - EYE PRURITUS [None]
